FAERS Safety Report 21338390 (Version 1)
Quarter: 2022Q3

REPORT INFORMATION
  Report Type: Spontaneous
  Country: DE (occurrence: DE)
  Receive Date: 20220915
  Receipt Date: 20220915
  Transmission Date: 20221026
  Serious: Yes (Death, Hospitalization)
  Sender: FDA-Public Use
  Company Number: None

PATIENT
  Age: 86 Year
  Sex: Female

DRUGS (9)
  1. DOXAZOSIN MESYLATE [Suspect]
     Active Substance: DOXAZOSIN MESYLATE
     Dosage: 8 MG, 1X/DAY (1-0-0-0)
     Route: 048
  2. FELODIPINE [Suspect]
     Active Substance: FELODIPINE
     Dosage: 5 MG, 1X/DAY (1-0-0-0)
     Route: 048
  3. METOPROLOL [Suspect]
     Active Substance: METOPROLOL
     Dosage: 100 MG, 1X/DAY (0-0-1-0)
     Route: 048
  4. FUROSEMIDE [Suspect]
     Active Substance: FUROSEMIDE
     Dosage: 60 MG, 1X/DAY (1-0-0-0)
     Route: 048
  5. TRAMADOL [Suspect]
     Active Substance: TRAMADOL
     Dosage: 150 MG, AS NEEDED
     Route: 048
  6. RAMIPRIL [Suspect]
     Active Substance: RAMIPRIL
     Dosage: 5 MG, 1X/DAY (1-0-0-0)
     Route: 048
  7. ASPIRIN [Concomitant]
     Active Substance: ASPIRIN
     Dosage: 100 MG, 1X/DAY (1-0-0-0)
     Route: 048
  8. GINKGO [Concomitant]
     Active Substance: GINKGO
     Dosage: 120 MG, 2X/DAY (1-0-1-0)
     Route: 048
  9. BENSERAZIDE\LEVODOPA [Concomitant]
     Active Substance: BENSERAZIDE\LEVODOPA
     Dosage: 1 DF, 1X/DAY (1-0-0-0)
     Route: 048

REACTIONS (4)
  - Dehydration [Fatal]
  - Hypotension [Fatal]
  - Disorientation [Fatal]
  - Fall [Fatal]
